FAERS Safety Report 24849787 (Version 1)
Quarter: 2025Q1

REPORT INFORMATION
  Report Type: Report from Study
  Country: GB (occurrence: GB)
  Receive Date: 20250116
  Receipt Date: 20250116
  Transmission Date: 20250409
  Serious: Yes (Hospitalization, Other)
  Sender: SANDOZ
  Company Number: GB-SANDOZ-SDZ2024GB044508

PATIENT
  Sex: Female

DRUGS (2)
  1. HYRIMOZ [Suspect]
     Active Substance: ADALIMUMAB-ADAZ
     Dosage: 40 MG, Q2W (40MG/0.4ML)
     Route: 058
  2. HYRIMOZ [Suspect]
     Active Substance: ADALIMUMAB-ADAZ
     Indication: Rheumatoid arthritis
     Dosage: 40 MG, Q2W, PRE-FILLED PEN
     Route: 058
     Dates: start: 20230908

REACTIONS (5)
  - Hospitalisation [Not Recovered/Not Resolved]
  - Lower respiratory tract infection [Unknown]
  - Viral infection [Unknown]
  - Malaise [Unknown]
  - Asthma [Unknown]
